FAERS Safety Report 7107907-5 (Version None)
Quarter: 2010Q4

REPORT INFORMATION
  Report Type: 
  Country: None (occurrence: None)
  Receive Date: 20101117
  Receipt Date: 20101108
  Transmission Date: 20110411
  Serious: Yes (Death, Other)
  Sender: FDA-Public Use
  Company Number: US-ELI_LILLY_AND_COMPANY-US201011002254

PATIENT
  Sex: Male

DRUGS (3)
  1. FORTEO [Suspect]
     Indication: OSTEOPOROSIS
     Dosage: 20 UG, DAILY (1/D)
     Dates: end: 20101026
  2. ANTIHYPERTENSIVES [Concomitant]
     Indication: HYPERTENSION
  3. OXYGEN [Concomitant]
     Indication: SLEEP APNOEA SYNDROME

REACTIONS (2)
  - DEATH [None]
  - LUNG DISORDER [None]
